FAERS Safety Report 16729019 (Version 2)
Quarter: 2024Q3

REPORT INFORMATION
  Report Type: Report from Study
  Country: US (occurrence: US)
  Receive Date: 20190822
  Receipt Date: 20240805
  Transmission Date: 20241016
  Serious: No
  Sender: KYOWA
  Company Number: US-KYOWAKIRIN-2019BKK013123

PATIENT

DRUGS (2)
  1. BUROSUMAB [Suspect]
     Active Substance: BUROSUMAB
     Indication: Hereditary hypophosphataemic rickets
     Dosage: 30 MG/ML, 1X/2 WEEKS
     Route: 065
     Dates: start: 20190705
  2. BUROSUMAB [Suspect]
     Active Substance: BUROSUMAB
     Dosage: 90 MG, 1X/4 WEEKS
     Route: 065
     Dates: start: 20240731

REACTIONS (2)
  - Vitamin D decreased [Unknown]
  - Self-medication [Unknown]

NARRATIVE: CASE EVENT DATE: 20240731
